FAERS Safety Report 16265267 (Version 2)
Quarter: 2019Q2

REPORT INFORMATION
  Report Type: Spontaneous
  Country: US (occurrence: US)
  Receive Date: 20190502
  Receipt Date: 20190503
  Transmission Date: 20190711
  Serious: No
  Sender: FDA-Public Use
  Company Number: US-BAYER-2019-088272

PATIENT
  Age: 46 Year
  Sex: Female
  Weight: 73 kg

DRUGS (1)
  1. MIRALAX [Suspect]
     Active Substance: POLYETHYLENE GLYCOL 3350
     Indication: GASTROINTESTINAL DISORDER
     Route: 048
     Dates: start: 2017

REACTIONS (2)
  - Incorrect product administration duration [Unknown]
  - Product contamination physical [None]

NARRATIVE: CASE EVENT DATE: 2017
